FAERS Safety Report 20632237 (Version 3)
Quarter: 2022Q2

REPORT INFORMATION
  Report Type: Spontaneous
  Country: US (occurrence: US)
  Receive Date: 20220324
  Receipt Date: 20220508
  Transmission Date: 20220721
  Serious: No
  Sender: FDA-Public Use
  Company Number: US-JNJFOC-20220342563

PATIENT
  Age: 91 Year
  Sex: Male
  Weight: 80.358 kg

DRUGS (1)
  1. IMODIUM A-D [Suspect]
     Active Substance: LOPERAMIDE HYDROCHLORIDE
     Indication: Product used for unknown indication
     Dosage: TOOK SOME RECENTLY, TAKES SOMETIMES ONCE IN MONTH
     Route: 065
     Dates: start: 202203

REACTIONS (3)
  - Expired product administered [Unknown]
  - Adverse event [Unknown]
  - Infrequent bowel movements [Recovered/Resolved]

NARRATIVE: CASE EVENT DATE: 20220301
